FAERS Safety Report 23474436 (Version 1)
Quarter: 2024Q1

REPORT INFORMATION
  Report Type: Report from Study
  Country: US (occurrence: US)
  Receive Date: 20240204
  Receipt Date: 20240204
  Transmission Date: 20240409
  Serious: Yes (Hospitalization)
  Sender: FDA-Public Use
  Company Number: US-EXELIXIS-CABO-23061173

PATIENT
  Sex: Male

DRUGS (6)
  1. CABOMETYX [Suspect]
     Active Substance: CABOZANTINIB S-MALATE
     Indication: Colon cancer
     Dosage: 60 MG, QD
     Route: 048
     Dates: start: 202211, end: 20230330
  2. TEPMETKO [Suspect]
     Active Substance: TEPOTINIB HYDROCHLORIDE
     Indication: Colon cancer
     Dosage: 450 MG, BID
     Dates: start: 20230309, end: 20230330
  3. AMLODIPINE [Concomitant]
     Active Substance: AMLODIPINE BESYLATE
  4. FLOMAX [Concomitant]
     Active Substance: TAMSULOSIN HYDROCHLORIDE
  5. VITAMIN D NOS [Concomitant]
     Active Substance: VITAMIN D NOS
  6. PROBIOTICS NOS [Concomitant]
     Active Substance: PROBIOTICS NOS

REACTIONS (7)
  - Pulmonary embolism [Not Recovered/Not Resolved]
  - Swollen tongue [Recovering/Resolving]
  - Oral pain [Unknown]
  - Dry mouth [Not Recovered/Not Resolved]
  - Blood potassium decreased [Not Recovered/Not Resolved]
  - Fatigue [Not Recovered/Not Resolved]
  - Off label use [Unknown]
